FAERS Safety Report 6285877-X (Version None)
Quarter: 2009Q3

REPORT INFORMATION
  Report Type: 
  Country: None (occurrence: None)
  Receive Date: 20090724
  Receipt Date: 20090710
  Transmission Date: 20100115
  Serious: Yes (Hospitalization, Other)
  Sender: FDA-Public Use
  Company Number: JP-1168539

PATIENT
  Age: 85 Year
  Sex: Female

DRUGS (5)
  1. TRAVATAN Z [Suspect]
     Indication: OPEN ANGLE GLAUCOMA
     Dosage: 1 GTT QD DU
     Route: 047
     Dates: start: 20081120
  2. HYALONSAN (HYALURONATE SODIUM) [Concomitant]
  3. OFLOXACIN (OFLOXACIN) [Concomitant]
  4. ODOMEL (FLUOROMETHOLONE) [Concomitant]
  5. PITOS (FLUOROMETHOLONE) [Concomitant]

REACTIONS (5)
  - ANTERIOR CHAMBER INFLAMMATION [None]
  - HEPATITIS [None]
  - KERATITIS [None]
  - OCULAR HYPERAEMIA [None]
  - ULCERATIVE KERATITIS [None]
